FAERS Safety Report 6144942-8 (Version None)
Quarter: 2009Q2

REPORT INFORMATION
  Report Type: 
  Country: None (occurrence: None)
  Receive Date: 20090402
  Receipt Date: 20090402
  Transmission Date: 20091009
  Serious: Yes (Hospitalization)
  Sender: FDA-Public Use
  Company Number: None

PATIENT
  Age: 6 Month
  Sex: Male
  Weight: 5.9 kg

DRUGS (2)
  1. SYNAGIS [Suspect]
     Indication: PREMATURE BABY
     Dosage: 15MG/KG QMONTH IM
     Route: 030
     Dates: start: 20081126, end: 20090220
  2. SYNAGIS [Suspect]

REACTIONS (1)
  - RESPIRATORY SYNCYTIAL VIRUS TEST POSITIVE [None]
